FAERS Safety Report 5101979-5 (Version None)
Quarter: 2006Q3

REPORT INFORMATION
  Report Type: 
  Country: None (occurrence: None)
  Receive Date: 20060907
  Receipt Date: 20060906
  Transmission Date: 20061208
  Serious: Yes (Death, Life-Threatening)
  Sender: FDA-Public Use
  Company Number: 226205

PATIENT
  Age: 69 Year
  Sex: Male
  Weight: 68.9 kg

DRUGS (4)
  1. AVASTIN [Suspect]
     Indication: COLORECTAL CANCER METASTATIC
     Dosage: 5 MG/KG, Q2W, INTRAVENOUS
     Route: 042
     Dates: start: 20050803
  2. FLUOROURACIL [Concomitant]
  3. LEUCOVORIN (LEUCOVORIN CALCIUM) [Concomitant]
  4. OXALIPLATIN [Concomitant]

REACTIONS (1)
  - DISEASE PROGRESSION [None]
